FAERS Safety Report 15785549 (Version 1)
Quarter: 2018Q4

REPORT INFORMATION
  Report Type: Spontaneous
  Country: US (occurrence: US)
  Receive Date: 20181228
  Receipt Date: 20181228
  Transmission Date: 20190205
  Serious: Yes (Hospitalization)
  Sender: FDA-Public Use
  Company Number: None

PATIENT

DRUGS (2)
  1. LEVOCARNITINE. [Suspect]
     Active Substance: LEVOCARNITINE
     Route: 048
  2. CARNITOR [Suspect]
     Active Substance: LEVOCARNITINE
     Route: 048

REACTIONS (4)
  - Product barcode issue [None]
  - Product label confusion [None]
  - Incorrect dose administered [None]
  - Physical product label issue [None]
